FAERS Safety Report 7723291-8 (Version None)
Quarter: 2011Q3

REPORT INFORMATION
  Report Type: 
  Country: None (occurrence: None)
  Receive Date: 20110826
  Receipt Date: 20110810
  Transmission Date: 20111222
  Serious: Yes (Other)
  Sender: FDA-Public Use
  Company Number: FK201101671

PATIENT
  Age: 53 Year
  Sex: Female

DRUGS (4)
  1. FLUOXETINE [Concomitant]
  2. METHOTREXATE [Suspect]
     Indication: NON-HODGKIN'S LYMPHOMA
     Dosage: 3000 MG/M2
  3. VALACICLOVIR (VALACICLOVIR) (VALACICLOVIR) [Concomitant]
  4. PANTOPRAZOLE [Suspect]
     Indication: NON-HODGKIN'S LYMPHOMA
     Dosage: 20 MG/M2

REACTIONS (3)
  - RENAL FAILURE [None]
  - DRUG INTERACTION [None]
  - DRUG LEVEL INCREASED [None]
